FAERS Safety Report 5292566-7 (Version None)
Quarter: 2007Q2

REPORT INFORMATION
  Report Type: 
  Country: None (occurrence: None)
  Receive Date: 20070404
  Receipt Date: 20070322
  Transmission Date: 20071010
  Serious: Yes (Hospitalization)
  Sender: FDA-Public Use
  Company Number: 2007BI003587

PATIENT
  Age: 50 Year
  Sex: Male
  Weight: 70 kg

DRUGS (12)
  1. NATALIZUMAB (NATALIZUMAB) [Suspect]
     Indication: SECONDARY PROGRESSIVE MULTIPLE SCLEROSIS
     Dosage: 300 MG;QM;IV
     Route: 042
     Dates: start: 20070130, end: 20070130
  2. NATALIZUMAB (NATALIZUMAB) [Suspect]
     Indication: SECONDARY PROGRESSIVE MULTIPLE SCLEROSIS
     Dosage: 300 MG;QM;IV
     Route: 042
     Dates: start: 20070302
  3. ASPIRIN [Concomitant]
  4. VIGIL [Concomitant]
  5. LIORESAL [Concomitant]
  6. DANTAMACRINE [Concomitant]
  7. MYDOCALM [Concomitant]
  8. VITAMIN E [Concomitant]
  9. ATORVASTATIN CALCIUM [Concomitant]
  10. MARINOL [Concomitant]
  11. MITOXANTRONE [Concomitant]
  12. DECORTINE [Concomitant]

REACTIONS (15)
  - ACTIVATED PARTIAL THROMBOPLASTIN TIME SHORTENED [None]
  - ASTHENIA [None]
  - BLOOD SODIUM INCREASED [None]
  - DISEASE PROGRESSION [None]
  - DIZZINESS [None]
  - DYSPNOEA [None]
  - HAEMATOCRIT DECREASED [None]
  - HEADACHE [None]
  - INFLUENZA [None]
  - INSOMNIA [None]
  - MULTIPLE SCLEROSIS [None]
  - NAUSEA [None]
  - PLATELET COUNT INCREASED [None]
  - RESPIRATORY DISORDER [None]
  - SLEEP DISORDER [None]
